FAERS Safety Report 7287935-X (Version None)
Quarter: 2011Q1

REPORT INFORMATION
  Report Type: 
  Country: None (occurrence: None)
  Receive Date: 20110211
  Receipt Date: 20110127
  Transmission Date: 20110831
  Serious: Yes (Other)
  Sender: FDA-Public Use
  Company Number: CZ-AMGEN-KDC426117

PATIENT
  Age: 60 Year
  Sex: Male

DRUGS (4)
  1. DENOSUMAB [Suspect]
     Indication: METASTASES TO BONE
     Dosage: 120 MG, QMO
     Route: 058
     Dates: start: 20100311
  2. DOCETAXEL [Concomitant]
     Dosage: 150 MG, QMO
     Route: 042
     Dates: start: 20090528
  3. DEXAMETHASONE [Concomitant]
     Dosage: 24 MG, Q3WK
     Route: 048
     Dates: start: 20090524
  4. DIABETIC MEDICATION NOS [Concomitant]
     Dosage: 20 MG, UNK
     Route: 048
     Dates: start: 20100202

REACTIONS (1)
  - OSTEONECROSIS OF JAW [None]
